FAERS Safety Report 19781947 (Version 1)
Quarter: 2021Q3

REPORT INFORMATION
  Report Type: Spontaneous
  Country: US (occurrence: US)
  Receive Date: 20210902
  Receipt Date: 20210902
  Transmission Date: 20211014
  Serious: No
  Sender: FDA-Public Use
  Company Number: US-ENDO PHARMACEUTICALS INC-2021-007933

PATIENT
  Sex: Female

DRUGS (2)
  1. METHYLPREDNISOLONE SODIUM SUCCINATE. [Suspect]
     Active Substance: METHYLPREDNISOLONE SODIUM SUCCINATE
     Indication: DERMATOMYOSITIS
     Dosage: 1000 MG IN NORMAL SALINE 250 ML IN INTRAVENOUS BAG, TOOK FOR 3 DAYS, UNKNOWN
     Route: 042
  2. PREDNISONE. [Suspect]
     Active Substance: PREDNISONE
     Indication: DERMATOMYOSITIS
     Dosage: 30 MG, BID, UNLESS SHE WAS GETTING IV STEROIDS
     Route: 048
     Dates: start: 202105

REACTIONS (1)
  - Drug ineffective [Unknown]
